FAERS Safety Report 15754376 (Version 2)
Quarter: 2019Q1

REPORT INFORMATION
  Report Type: Report from Study
  Country: None (occurrence: CO)
  Receive Date: 20181224
  Receipt Date: 20190126
  Transmission Date: 20190417
  Serious: Yes (Disabling, Other)
  Sender: FDA-Public Use
  Company Number: CO-ABBVIE-18K-036-2570158-00

PATIENT
  Sex: Male

DRUGS (1)
  1. HUMIRA [Suspect]
     Active Substance: ADALIMUMAB
     Indication: HIDRADENITIS
     Route: 058
     Dates: start: 20141002, end: 20181116

REACTIONS (5)
  - Pelvic haemorrhage [Unknown]
  - Skin irritation [Unknown]
  - Hidradenitis [Not Recovered/Not Resolved]
  - Scar [Unknown]
  - Necrosis [Not Recovered/Not Resolved]

NARRATIVE: CASE EVENT DATE: 2015
